FAERS Safety Report 7525226-X (Version None)
Quarter: 2011Q2

REPORT INFORMATION
  Report Type: 
  Country: None (occurrence: None)
  Receive Date: 20110602
  Receipt Date: 20110602
  Transmission Date: 20111010
  Serious: Yes (Other)
  Sender: FDA-Public Use
  Company Number: None

PATIENT
  Age: 52 Year
  Sex: Female
  Weight: 54.4316 kg

DRUGS (2)
  1. CLONAZEPAM [Suspect]
     Indication: GENERALISED ANXIETY DISORDER
     Dosage: 1MG BID PO
     Route: 048
  2. ALPRAZOLAM [Suspect]
     Indication: GENERALISED ANXIETY DISORDER
     Dosage: 2MG Q 6HR PO
     Route: 048

REACTIONS (9)
  - SHOPLIFTING [None]
  - ECONOMIC PROBLEM [None]
  - LOSS OF CONSCIOUSNESS [None]
  - PHYSICAL ASSAULT [None]
  - MEMORY IMPAIRMENT [None]
  - IMPRISONMENT [None]
  - AGGRESSION [None]
  - LEGAL PROBLEM [None]
  - ANGER [None]
